FAERS Safety Report 10340432 (Version 1)
Quarter: 2014Q3

REPORT INFORMATION
  Report Type: Spontaneous
  Country: IL (occurrence: IL)
  Receive Date: 20140724
  Receipt Date: 20140724
  Transmission Date: 20150326
  Serious: Yes (Disabling, Other)
  Sender: FDA-Public Use
  Company Number: IL-MUNDIPHARMA DS AND PHARMACOVIGILANCE-GBR-2014-0019632

PATIENT
  Age: 77 Year
  Sex: Female

DRUGS (2)
  1. BUTRANS [Suspect]
     Active Substance: BUPRENORPHINE
     Dosage: 5 MCG, Q1H
     Route: 062
  2. BUTRANS [Suspect]
     Active Substance: BUPRENORPHINE
     Dosage: 10 MCG, Q1H
     Route: 062

REACTIONS (3)
  - Dementia [Unknown]
  - Inadequate analgesia [Unknown]
  - Muscular weakness [Not Recovered/Not Resolved]
